FAERS Safety Report 8168634-9 (Version None)
Quarter: 2012Q1

REPORT INFORMATION
  Report Type: 
  Country: None (occurrence: None)
  Receive Date: 20120227
  Receipt Date: 20120220
  Transmission Date: 20120608
  Serious: No
  Sender: FDA-Public Use
  Company Number: CA-PFIZER INC-2012020757

PATIENT
  Age: 27 Year
  Sex: Male
  Weight: 85.714 kg

DRUGS (1)
  1. PRISTIQ [Suspect]
     Indication: DEPRESSION
     Dosage: 50 MG, 1X/DAY
     Route: 048
     Dates: start: 20110920

REACTIONS (2)
  - THERAPEUTIC RESPONSE UNEXPECTED [None]
  - DRUG ABUSE [None]
